FAERS Safety Report 4613231-2 (Version None)
Quarter: 2005Q1

REPORT INFORMATION
  Report Type: 
  Country: None (occurrence: None)
  Receive Date: 20050315
  Receipt Date: 20050302
  Transmission Date: 20050727
  Serious: Yes (Congenital Anomaly)
  Sender: FDA-Public Use
  Company Number: 2005042143

PATIENT
  Sex: 0

DRUGS (2)
  1. LITHIUM CARBONATE [Suspect]
     Indication: ILL-DEFINED DISORDER
  2. HALOPERIDOL [Suspect]
     Indication: ILL-DEFINED DISORDER

REACTIONS (5)
  - ANENCEPHALY [None]
  - COMPLICATIONS OF MATERNAL EXPOSURE TO THERAPEUTIC DRUGS [None]
  - FOETAL DISORDER [None]
  - SMALL FOR DATES BABY [None]
  - SPINAL DISORDER [None]
